FAERS Safety Report 7198127-7 (Version None)
Quarter: 2010Q4

REPORT INFORMATION
  Report Type: 
  Country: None (occurrence: None)
  Receive Date: 20101227
  Receipt Date: 20101216
  Transmission Date: 20110411
  Serious: Yes (Other)
  Sender: FDA-Public Use
  Company Number: FR-BAXTER-2010BH029088

PATIENT
  Age: 62 Year
  Sex: Female
  Weight: 43 kg

DRUGS (2)
  1. GAMMAGARD S/D [Suspect]
     Indication: HYPOGAMMAGLOBULINAEMIA
     Route: 042
     Dates: start: 20101126, end: 20101126
  2. IMMUNOGLOBULIN HUMAN NORMAL [Concomitant]
     Indication: HYPOGAMMAGLOBULINAEMIA
     Dates: start: 20100901, end: 20101105

REACTIONS (6)
  - BLOOD PRESSURE INCREASED [None]
  - CHILLS [None]
  - FATIGUE [None]
  - FEELING COLD [None]
  - MALAISE [None]
  - PYREXIA [None]
